FAERS Safety Report 20870527 (Version 2)
Quarter: 2022Q2

REPORT INFORMATION
  Report Type: Spontaneous
  Country: None (occurrence: US)
  Receive Date: 20220525
  Receipt Date: 20220601
  Transmission Date: 20220721
  Serious: No
  Sender: FDA-Public Use
  Company Number: US-SERB S.A.S.-2129144

PATIENT
  Age: 57 Year
  Sex: Male

DRUGS (2)
  1. CYANOKIT [Suspect]
     Active Substance: HYDROXOCOBALAMIN
     Indication: Respiratory fume inhalation disorder
     Route: 065
  2. SILVER SULFADIAZINE [Suspect]
     Active Substance: SILVER SULFADIAZINE
     Route: 065

REACTIONS (1)
  - Methaemoglobinaemia [Unknown]
